FAERS Safety Report 9053430 (Version 1)
Quarter: 2013Q1

REPORT INFORMATION
  Report Type: Spontaneous
  Country: US (occurrence: None)
  Receive Date: 20130114
  Receipt Date: 20130114
  Transmission Date: 20140127
  Serious: Yes (Hospitalization)
  Sender: FDA-Public Use
  Company Number: 33668

PATIENT
  Sex: Female
  Weight: 71.22 kg

DRUGS (9)
  1. GLASSIA [Suspect]
     Indication: ALPHA-1 ANTI-TRYPSIN DEFICIENCY
     Dosage: 5 VIALS, WEEKLY, IV
     Dates: start: 201107
  2. ALBUTEROL [Concomitant]
  3. SPIRIVA [Concomitant]
  4. NORVASC [Concomitant]
  5. LISINOPRIL [Concomitant]
  6. SIMVASTATIN [Concomitant]
  7. PEPCID [Concomitant]
  8. HYDROCHLORITHIAZIDE [Concomitant]
  9. OXYGEN [Concomitant]

REACTIONS (5)
  - Chronic obstructive pulmonary disease [None]
  - Bronchitis haemophilus [None]
  - Pneumonia [None]
  - Influenza [None]
  - Haemophilus test positive [None]
